FAERS Safety Report 5782413-9 (Version None)
Quarter: 2008Q2

REPORT INFORMATION
  Report Type: 
  Country: None (occurrence: None)
  Receive Date: 20080623
  Receipt Date: 20080609
  Transmission Date: 20081010
  Serious: Yes (Other)
  Sender: FDA-Public Use
  Company Number: PHHY2008FI07266

PATIENT
  Sex: Female

DRUGS (9)
  1. ZOMETA [Suspect]
     Indication: OSTEOPOROSIS
     Dosage: UNK
  2. ZOLEDRONIC ACID [Suspect]
     Indication: OSTEOPOROSIS
     Dosage: UNK
     Route: 042
     Dates: start: 20080213
  3. BONIVA [Suspect]
  4. ATACAND HCT [Concomitant]
     Dosage: UNK
  5. ATACAND HCT [Concomitant]
     Dosage: UNK
  6. INEGY [Concomitant]
     Dosage: 10/20 MG
  7. THYROXIN [Concomitant]
     Dosage: 50 MCG
  8. OXIKLORIN [Concomitant]
     Dosage: 300 MG, QW5
  9. NEXIUM [Concomitant]
     Dosage: UNK

REACTIONS (4)
  - FACE AND MOUTH X-RAY ABNORMAL [None]
  - GINGIVITIS [None]
  - OSTEONECROSIS [None]
  - TOOTH EXTRACTION [None]
